FAERS Safety Report 19646336 (Version 1)
Quarter: 2021Q3

REPORT INFORMATION
  Report Type: Other
  Country: IT (occurrence: IT)
  Receive Date: 20210802
  Receipt Date: 20210802
  Transmission Date: 20211014
  Serious: Yes (Hospitalization)
  Sender: FDA-Public Use
  Company Number: IT-ROCHE-2878645

PATIENT
  Age: 60 Year
  Sex: Male

DRUGS (5)
  1. HYDROXYCHLOROQUINE [Concomitant]
     Active Substance: HYDROXYCHLOROQUINE
  2. BENDAMUSTINE [Suspect]
     Active Substance: BENDAMUSTINE
     Indication: FOLLICULAR LYMPHOMA
     Route: 065
  3. HYPERIMMUNE PLASMA COVID?19 [Concomitant]
     Active Substance: COVID-19 CONVALESCENT PLASMA
  4. RITUXIMAB. [Suspect]
     Active Substance: RITUXIMAB
     Indication: FOLLICULAR LYMPHOMA
     Route: 065
  5. PREDNISONE. [Concomitant]
     Active Substance: PREDNISONE

REACTIONS (2)
  - Off label use [Unknown]
  - COVID-19 [Recovered/Resolved]

NARRATIVE: CASE EVENT DATE: 2020
